FAERS Safety Report 7027032-1 (Version None)
Quarter: 2010Q4

REPORT INFORMATION
  Report Type: 
  Country: None (occurrence: None)
  Receive Date: 20101004
  Receipt Date: 20100922
  Transmission Date: 20110411
  Serious: Yes (Other)
  Sender: FDA-Public Use
  Company Number: US-US-EMD SERONO, INC.-430014J09USA

PATIENT
  Sex: Female

DRUGS (8)
  1. NOVANTRONE [Suspect]
     Indication: MULTIPLE SCLEROSIS
     Route: 065
     Dates: start: 20031101, end: 20080201
  2. REBIF [Suspect]
     Indication: MULTIPLE SCLEROSIS
     Route: 058
     Dates: start: 20030207
  3. CRESTOR [Concomitant]
     Indication: BLOOD CHOLESTEROL INCREASED
     Route: 065
  4. OTHER UNSPECIFIED MEDICATION [Concomitant]
     Route: 065
  5. ZOLOFT [Concomitant]
     Indication: ANXIETY
     Route: 065
     Dates: start: 20091001
  6. LORAZEPAM [Concomitant]
     Indication: ANXIETY
     Route: 065
     Dates: start: 20091001
  7. FOSAMAX [Concomitant]
  8. DETROL [Concomitant]

REACTIONS (2)
  - CORONARY ARTERY OCCLUSION [None]
  - MALIGNANT MELANOMA [None]
